FAERS Safety Report 7546228-3 (Version None)
Quarter: 2011Q2

REPORT INFORMATION
  Report Type: 
  Country: None (occurrence: None)
  Receive Date: 20110614
  Receipt Date: 20110609
  Transmission Date: 20111010
  Serious: Yes (Life-Threatening, Hospitalization, Other)
  Sender: FDA-Public Use
  Company Number: PHHY2011CH50942

PATIENT
  Age: 66 Year
  Sex: Female
  Weight: 54 kg

DRUGS (13)
  1. MITOXANTRONE HYDROCHLORIDE [Suspect]
     Indication: MULTIPLE MYELOMA
     Dosage: UNK
     Dates: start: 19991201
  2. REVLIMID [Suspect]
     Indication: MULTIPLE MYELOMA
     Dosage: UNK
     Dates: start: 20060101
  3. AREDIA [Suspect]
     Dosage: UNK
     Dates: start: 20010101
  4. CYCLOPHOSPHAMIDE [Suspect]
     Dosage: UNK
     Dates: start: 20071101, end: 20080301
  5. AREDIA [Suspect]
     Indication: MULTIPLE MYELOMA
     Dosage: UNK
     Dates: start: 19980101
  6. VELCADE [Suspect]
     Dosage: UNK
     Dates: start: 20080101
  7. AREDIA [Suspect]
     Dosage: UNK
     Dates: start: 20060101
  8. CYCLOPHOSPHAMIDE [Suspect]
     Indication: MULTIPLE MYELOMA
     Dosage: UNK
     Dates: start: 19990101
  9. VELCADE [Suspect]
     Dosage: UNK
     Dates: start: 20090101
  10. VELCADE [Suspect]
     Dosage: UNK
     Dates: start: 20100101
  11. VELCADE [Suspect]
     Indication: MULTIPLE MYELOMA
     Dosage: UNK
     Dates: start: 20060101
  12. REVLIMID [Suspect]
     Dosage: UNK
     Dates: start: 20090101
  13. AREDIA [Suspect]
     Dosage: UNK
     Dates: start: 20080101

REACTIONS (6)
  - EJECTION FRACTION DECREASED [None]
  - DYSPNOEA [None]
  - RENAL FAILURE [None]
  - CARDIOMYOPATHY [None]
  - OEDEMA [None]
  - AMYLOIDOSIS [None]
